FAERS Safety Report 7397710-3 (Version None)
Quarter: 2011Q2

REPORT INFORMATION
  Report Type: 
  Country: None (occurrence: None)
  Receive Date: 20110406
  Receipt Date: 20110328
  Transmission Date: 20111010
  Serious: Yes (Hospitalization)
  Sender: FDA-Public Use
  Company Number: DE-ASTRAZENECA-2011SE11864

PATIENT
  Age: 51 Year
  Sex: Female

DRUGS (12)
  1. SEROQUEL [Suspect]
     Route: 048
     Dates: start: 20100716, end: 20100819
  2. LITHIUM DURILES [Concomitant]
     Dosage: 250 - 2000 MG GRADUALLY INCREASED
     Route: 048
     Dates: start: 20100615, end: 20100723
  3. LITHIUM DURILES [Concomitant]
     Route: 048
     Dates: start: 20100724, end: 20100829
  4. LITHIUM DURILES [Concomitant]
     Route: 048
     Dates: start: 20100830, end: 20100905
  5. ZOLOFT [Concomitant]
     Route: 048
     Dates: start: 20100726, end: 20100827
  6. SEROQUEL [Suspect]
     Route: 048
     Dates: start: 20100820, end: 20100823
  7. ZOLOFT [Concomitant]
     Route: 048
     Dates: start: 20090101, end: 20100725
  8. LITHIUM DURILES [Concomitant]
     Route: 048
     Dates: start: 20100906
  9. LAMOTRIGINE [Concomitant]
     Route: 048
     Dates: start: 20080101
  10. SEROQUEL [Suspect]
     Dosage: 25 MG AS NEEDED, APPROX. EVERY SECOND DAY
     Route: 048
     Dates: start: 20100612, end: 20100715
  11. ZOLOFT [Concomitant]
     Route: 048
     Dates: start: 20100828
  12. LEVOTHYROXINE SODIUM [Concomitant]
     Dosage: 75-100 ?G DAILY
     Route: 048

REACTIONS (2)
  - CEREBRAL INFARCTION [None]
  - LACUNAR INFARCTION [None]
